FAERS Safety Report 4848858-6 (Version None)
Quarter: 2005Q4

REPORT INFORMATION
  Report Type: 
  Country: None (occurrence: None)
  Receive Date: 20051208
  Receipt Date: 20041209
  Transmission Date: 20060501
  Serious: Yes (Life-Threatening, Hospitalization, Disabling, Other)
  Sender: FDA-Public Use
  Company Number: US-MERCK-0412USA01180

PATIENT
  Age: 63 Year
  Sex: Male
  Weight: 117 kg

DRUGS (23)
  1. VIOXX [Suspect]
     Indication: ARTHRALGIA
     Route: 048
     Dates: start: 20010927
  2. VIOXX [Suspect]
     Route: 048
     Dates: start: 20040127, end: 20040130
  3. VIOXX [Suspect]
     Route: 048
  4. VIOXX [Suspect]
     Route: 048
     Dates: start: 20040130
  5. VIOXX [Suspect]
     Route: 048
     Dates: start: 20040401
  6. VIOXX [Suspect]
     Route: 048
     Dates: start: 20040401
  7. VIOXX [Suspect]
     Route: 048
     Dates: start: 20040917, end: 20040930
  8. VIOXX [Suspect]
     Indication: MIGRAINE
     Route: 048
     Dates: start: 20010927
  9. VIOXX [Suspect]
     Route: 048
     Dates: start: 20040127, end: 20040130
  10. VIOXX [Suspect]
     Route: 048
  11. VIOXX [Suspect]
     Route: 048
     Dates: start: 20040130
  12. VIOXX [Suspect]
     Route: 048
     Dates: start: 20040401
  13. VIOXX [Suspect]
     Route: 048
     Dates: start: 20040401
  14. VIOXX [Suspect]
     Route: 048
     Dates: start: 20040917, end: 20040930
  15. ASPIRIN [Concomitant]
     Route: 065
  16. RITALIN [Concomitant]
     Indication: ATTENTION DEFICIT/HYPERACTIVITY DISORDER
     Route: 065
  17. LIPITOR [Concomitant]
     Indication: BLOOD CHOLESTEROL ABNORMAL
     Route: 048
  18. TIAZAC [Concomitant]
     Indication: HYPERTENSION
     Route: 048
  19. TIAZAC [Concomitant]
     Indication: CORONARY ARTERY DISEASE
     Route: 048
  20. HYTRIN [Concomitant]
     Route: 065
  21. LOPRESSOR [Concomitant]
     Indication: HYPERTENSION
     Route: 048
  22. LOPRESSOR [Concomitant]
     Indication: CORONARY ARTERY DISEASE
     Route: 048
  23. ZOLOFT [Concomitant]
     Indication: DEPRESSION
     Route: 048

REACTIONS (9)
  - ANGINA PECTORIS [None]
  - ANGINA UNSTABLE [None]
  - CORONARY ARTERY RESTENOSIS [None]
  - DEPRESSION [None]
  - ISCHAEMIA [None]
  - LIMB INJURY [None]
  - MYOCARDIAL INFARCTION [None]
  - OSTEOARTHRITIS [None]
  - THROMBOSIS [None]
